FAERS Safety Report 21238038 (Version 6)
Quarter: 2023Q1

REPORT INFORMATION
  Report Type: Report from Study
  Country: CL (occurrence: CL)
  Receive Date: 20220822
  Receipt Date: 20230224
  Transmission Date: 20230417
  Serious: Yes (Other)
  Sender: FDA-Public Use
  Company Number: CL-NOVARTISPH-NVSC2022CL159147

PATIENT
  Age: 59 Year
  Sex: Female

DRUGS (10)
  1. PIQRAY [Suspect]
     Active Substance: ALPELISIB
     Indication: Breast cancer stage IV
     Dosage: 200 MG, QD(CYCLE 1)(150 MG AND 50 MG)
     Route: 048
     Dates: start: 20220712
  2. PIQRAY [Suspect]
     Active Substance: ALPELISIB
     Dosage: 150 MG, BID (150 MG IN THE MORNING AND 150 MG AT NIGHT)
     Route: 048
  3. PIQRAY [Suspect]
     Active Substance: ALPELISIB
     Dosage: 300 MG, QD
     Route: 048
  4. PIQRAY [Suspect]
     Active Substance: ALPELISIB
     Dosage: 150 MG, QD
     Route: 048
  5. PIQRAY [Suspect]
     Active Substance: ALPELISIB
     Dosage: 300 MG, QD
     Route: 048
  6. PIQRAY [Suspect]
     Active Substance: ALPELISIB
     Dosage: 300 MG, QD
     Route: 048
     Dates: start: 20220718
  7. PIQRAY [Suspect]
     Active Substance: ALPELISIB
     Dosage: 300 MG, QD
     Route: 048
  8. PIQRAY [Suspect]
     Active Substance: ALPELISIB
     Dosage: 150 MG, BID (ORAL/VIA MOUTH)
     Route: 048
  9. FULVESTRANT [Suspect]
     Active Substance: FULVESTRANT
     Indication: Breast cancer stage IV
     Dosage: 500 MG, QMO (250 MG)
     Route: 030
     Dates: start: 20220614
  10. FULVESTRANT [Suspect]
     Active Substance: FULVESTRANT
     Dosage: UNK (EVERY 28 DAYS)
     Route: 065
     Dates: start: 20230213

REACTIONS (13)
  - Diabetes mellitus [Unknown]
  - Metastases to bone [Unknown]
  - Hyperglycaemia [Unknown]
  - Ill-defined disorder [Unknown]
  - Anal incontinence [Unknown]
  - Diarrhoea [Unknown]
  - Bone pain [Not Recovered/Not Resolved]
  - Nausea [Unknown]
  - Vision blurred [Unknown]
  - Product use issue [Unknown]
  - Product availability issue [Unknown]
  - Product dose omission issue [Unknown]
  - Off label use [Unknown]
